FAERS Safety Report 23186179 (Version 1)
Quarter: 2023Q4

REPORT INFORMATION
  Report Type: Spontaneous
  Country: US (occurrence: US)
  Receive Date: 20231115
  Receipt Date: 20231115
  Transmission Date: 20240110
  Serious: No
  Sender: FDA-Public Use
  Company Number: US-LANNETT COMPANY, INC.-US-2023LAN000116

PATIENT

DRUGS (1)
  1. DANAZOL [Suspect]
     Active Substance: DANAZOL
     Indication: Product used for unknown indication
     Dosage: UNK
     Route: 065

REACTIONS (1)
  - Alopecia [Not Recovered/Not Resolved]
